FAERS Safety Report 12584291 (Version 1)
Quarter: 2016Q3

REPORT INFORMATION
  Report Type: Spontaneous
  Country: BR (occurrence: BR)
  Receive Date: 20160722
  Receipt Date: 20160722
  Transmission Date: 20161109
  Serious: Yes (Other)
  Sender: FDA-Public Use
  Company Number: BR-PFIZER INC-2016351985

PATIENT
  Sex: Female

DRUGS (1)
  1. DEPO-PROVERA [Suspect]
     Active Substance: MEDROXYPROGESTERONE ACETATE
     Indication: MENORRHAGIA
     Dosage: 150 MG, UNK
     Route: 030
     Dates: start: 20160714

REACTIONS (11)
  - Palpitations [Unknown]
  - Dry mouth [Unknown]
  - Asthenia [Not Recovered/Not Resolved]
  - Product use issue [Unknown]
  - Vomiting [Unknown]
  - Dyspnoea [Unknown]
  - Presyncope [Unknown]
  - Retching [Unknown]
  - Syncope [Unknown]
  - Throat tightness [Unknown]
  - Tremor [Unknown]

NARRATIVE: CASE EVENT DATE: 201607
